FAERS Safety Report 8984462 (Version 1)
Quarter: 2012Q4

REPORT INFORMATION
  Report Type: Spontaneous
  Country: FR (occurrence: None)
  Receive Date: 20121213
  Receipt Date: 20121213
  Transmission Date: 20130627
  Serious: Yes (Life-Threatening)
  Sender: FDA-Public Use
  Company Number: FK201203786

PATIENT
  Age: 59 Year
  Sex: Female

DRUGS (10)
  1. VOLUVEN [Suspect]
     Indication: HYPOVOLEMIA
     Route: 042
     Dates: start: 20120913, end: 20120913
  2. CISPLATIN [Suspect]
     Indication: PRODUCT USED FOR UNKNOWN INDICATION
  3. PERFALGAN (PARACETAMOL) [Concomitant]
  4. ACUPAN (NEFOPAM HYDROCHLORIDE) [Concomitant]
  5. PROFENID (KETOPROFEN) [Concomitant]
  6. ZOPHREN (ONDANSETRON) [Concomitant]
  7. HEPARIN [Concomitant]
  8. ACTRAPID (INSULIN HUMAN) [Concomitant]
  9. EUPANTOL [Concomitant]
  10. NORADRENALINE (NOREPINEPHRINE) [Concomitant]

REACTIONS (6)
  - Renal failure [None]
  - Renal tubular disorder [None]
  - Functional gastrointestinal disorder [None]
  - Pleural effusion [None]
  - Gastrointestinal haemorrhage [None]
  - Gastrointestinal fistula [None]
